FAERS Safety Report 6857288-7 (Version None)
Quarter: 2010Q3

REPORT INFORMATION
  Report Type: 
  Country: None (occurrence: None)
  Receive Date: 20100719
  Receipt Date: 20100708
  Transmission Date: 20110219
  Serious: Yes (Hospitalization)
  Sender: FDA-Public Use
  Company Number: IT-PFIZER INC-2010085153

PATIENT
  Age: 76 Year
  Sex: Male

DRUGS (2)
  1. CARDURA [Suspect]
     Indication: HYPERTENSION
     Dosage: 8 MG, DAILY
  2. SINEMET [Suspect]
     Indication: PARKINSON'S DISEASE
     Dosage: 750 MG, DAILY

REACTIONS (4)
  - CARDIAC FAILURE [None]
  - DYSPNOEA [None]
  - HYPERKALAEMIA [None]
  - LUNG INFILTRATION [None]
